FAERS Safety Report 24697174 (Version 2)
Quarter: 2024Q4

REPORT INFORMATION
  Report Type: Spontaneous
  Country: PK (occurrence: PK)
  Receive Date: 20241204
  Receipt Date: 20241209
  Transmission Date: 20250114
  Serious: Yes (Hospitalization, Other)
  Sender: PFIZER
  Company Number: PK-PFIZER INC-PV202400157254

PATIENT
  Age: 20 Year
  Sex: Male
  Weight: 56 kg

DRUGS (4)
  1. IXIFI [Suspect]
     Active Substance: INFLIXIMAB-QBTX
     Indication: Colitis ulcerative
     Dosage: 200 MG, CYCLIC (8 WEEKLY)
     Route: 042
     Dates: start: 202407
  2. IXIFI [Suspect]
     Active Substance: INFLIXIMAB-QBTX
     Indication: Spondylitis
  3. IXIFI [Suspect]
     Active Substance: INFLIXIMAB-QBTX
     Indication: Inflammatory bowel disease
  4. IXIFI [Suspect]
     Active Substance: INFLIXIMAB-QBTX
     Indication: Renal amyloidosis

REACTIONS (3)
  - Pleural effusion [Unknown]
  - Red blood cell sedimentation rate increased [Unknown]
  - Off label use [Unknown]
